FAERS Safety Report 5417225-9 (Version None)
Quarter: 2007Q3

REPORT INFORMATION
  Report Type: 
  Country: None (occurrence: None)
  Receive Date: 20070816
  Receipt Date: 20070716
  Transmission Date: 20080115
  Serious: Yes (Death, Hospitalization)
  Sender: FDA-Public Use
  Company Number: ES-SANOFI-SYNTHELABO-A01200708842

PATIENT
  Age: 82 Year
  Sex: Male

DRUGS (7)
  1. PARACETAMOL [Concomitant]
     Indication: PAIN
     Route: 042
  2. ROPIVACAINE HYDROCHLORIDE [Suspect]
     Indication: ANALGESIA
     Dosage: UNK
     Route: 065
  3. MEPERIDINE HCL [Suspect]
     Indication: ANALGESIA
     Dosage: UNK
     Route: 065
  4. FENTANYL [Suspect]
     Indication: ANALGESIA
     Route: 062
  5. ASPIRIN [Suspect]
     Indication: DRUG USE FOR UNKNOWN INDICATION
     Route: 065
  6. CLOPIDOGREL [Suspect]
     Indication: DRUG USE FOR UNKNOWN INDICATION
     Route: 048
  7. LIDOCAINE [Suspect]
     Indication: DRUG USE FOR UNKNOWN INDICATION
     Dosage: UNK
     Route: 065

REACTIONS (3)
  - CARDIOPULMONARY FAILURE [None]
  - PAIN [None]
  - PULMONARY OEDEMA [None]
